FAERS Safety Report 4591314-3 (Version None)
Quarter: 2005Q1

REPORT INFORMATION
  Report Type: 
  Country: None (occurrence: None)
  Receive Date: 20050225
  Receipt Date: 20050214
  Transmission Date: 20050727
  Serious: Yes (Hospitalization)
  Sender: FDA-Public Use
  Company Number: FR-ROCHE-395529

PATIENT
  Age: 72 Year
  Sex: Female
  Weight: 65 kg

DRUGS (2)
  1. ROCEPHIN [Suspect]
     Indication: DRUG USE FOR UNKNOWN INDICATION
     Dosage: FORMULATION: INJECTABLE SOLUTION
     Route: 042
     Dates: start: 20041204, end: 20041207
  2. CLAMOXYL [Suspect]
     Indication: DRUG USE FOR UNKNOWN INDICATION
     Dosage: FORMULATION: INJECTABLE SOLUTION
     Route: 042
     Dates: start: 20041207, end: 20041209

REACTIONS (3)
  - DERMATITIS BULLOUS [None]
  - NIKOLSKY'S SIGN [None]
  - RASH ERYTHEMATOUS [None]
